FAERS Safety Report 12672885 (Version 1)
Quarter: 2016Q3

REPORT INFORMATION
  Report Type: Spontaneous
  Country: US (occurrence: US)
  Receive Date: 20160822
  Receipt Date: 20160822
  Transmission Date: 20161109
  Serious: No
  Sender: FDA-Public Use
  Company Number: US-JNJFOC-20160807804

PATIENT
  Age: 61 Year
  Sex: Female
  Weight: 97.52 kg

DRUGS (2)
  1. WOMENS ROGAINE UNSCENTED [Suspect]
     Active Substance: MINOXIDIL
     Route: 061
  2. WOMENS ROGAINE UNSCENTED [Suspect]
     Active Substance: MINOXIDIL
     Indication: ALOPECIA
     Dosage: SPRAYING DIRECTLY ON SCALP
     Route: 061
     Dates: end: 20160805

REACTIONS (4)
  - Alopecia [Not Recovered/Not Resolved]
  - Product quality issue [Unknown]
  - Product physical consistency issue [Unknown]
  - Wrong technique in product usage process [Not Recovered/Not Resolved]
